FAERS Safety Report 7161297-0 (Version None)
Quarter: 2010Q4

REPORT INFORMATION
  Report Type: 
  Country: None (occurrence: None)
  Receive Date: 20101215
  Receipt Date: 20101203
  Transmission Date: 20110411
  Serious: Yes (Hospitalization)
  Sender: FDA-Public Use
  Company Number: JP-EISAI INC.-E7389-00862-CLI-JP

PATIENT
  Sex: Female
  Weight: 47 kg

DRUGS (8)
  1. E7389 (BOLD) [Suspect]
     Indication: BREAST CANCER
     Route: 041
     Dates: start: 20090701
  2. E7389 (BOLD) [Suspect]
     Route: 041
     Dates: start: 20081120, end: 20090612
  3. FERROUS CITRATE [Concomitant]
     Indication: ANAEMIA
     Route: 048
  4. THYRADIN S [Concomitant]
     Route: 048
  5. METHYCOBAL [Concomitant]
     Route: 048
  6. LOXONIN [Concomitant]
     Indication: ARTHRALGIA
     Route: 048
  7. MOHRUS TAPE [Concomitant]
  8. CALONAL [Concomitant]
     Indication: FEBRILE NEUTROPENIA
     Route: 048
     Dates: start: 20090921, end: 20090921

REACTIONS (1)
  - CATARACT [None]
